FAERS Safety Report 5975065-6 (Version None)
Quarter: 2008Q4

REPORT INFORMATION
  Report Type: 
  Country: None (occurrence: None)
  Receive Date: 20081202
  Receipt Date: 20081121
  Transmission Date: 20090506
  Serious: Yes (Hospitalization, Other)
  Sender: FDA-Public Use
  Company Number: CH-WYE-G02630008

PATIENT
  Sex: Male

DRUGS (4)
  1. EFFEXOR [Suspect]
     Indication: HEADACHE
     Dates: start: 20080101
  2. EFFEXOR [Suspect]
     Indication: PARAESTHESIA
  3. EFFEXOR [Suspect]
     Indication: OFF LABEL USE
  4. XANAX [Concomitant]
     Dosage: DOSE AND FREQUENCY PRN

REACTIONS (2)
  - DRUG INEFFECTIVE FOR UNAPPROVED INDICATION [None]
  - POLYCYTHAEMIA [None]
